FAERS Safety Report 6848051-1 (Version None)
Quarter: 2010Q3

REPORT INFORMATION
  Report Type: 
  Country: None (occurrence: None)
  Receive Date: 20100714
  Receipt Date: 20100701
  Transmission Date: 20110219
  Serious: Yes (Hospitalization)
  Sender: FDA-Public Use
  Company Number: 230015M09SWE

PATIENT
  Age: 65 Year
  Sex: Male

DRUGS (3)
  1. REBIF [Suspect]
     Dosage: 44 MCG, 3 IN 1 WK, SUBCUTANEOUS; 22 MCG, 3 IN 1 WK, SUBCUTANEOUS
     Route: 058
     Dates: end: 20091022
  2. REBIF [Suspect]
     Dosage: 44 MCG, 3 IN 1 WK, SUBCUTANEOUS; 22 MCG, 3 IN 1 WK, SUBCUTANEOUS
     Route: 058
     Dates: end: 20100101
  3. REBIF [Suspect]
     Dosage: 44 MCG, 3 IN 1 WK, SUBCUTANEOUS; 22 MCG, 3 IN 1 WK, SUBCUTANEOUS
     Route: 058
     Dates: start: 19990615

REACTIONS (8)
  - CHEST DISCOMFORT [None]
  - DERMATITIS CONTACT [None]
  - IMPAIRED HEALING [None]
  - INJECTION SITE INFECTION [None]
  - OPEN WOUND [None]
  - SCAR [None]
  - STAPHYLOCOCCAL ABSCESS [None]
  - WRONG TECHNIQUE IN DRUG USAGE PROCESS [None]
